FAERS Safety Report 6994482-9 (Version None)
Quarter: 2010Q3

REPORT INFORMATION
  Report Type: 
  Country: None (occurrence: None)
  Receive Date: 20100917
  Receipt Date: 20100908
  Transmission Date: 20110219
  Serious: Yes (Other)
  Sender: FDA-Public Use
  Company Number: FR-JNJFOC-20100503307

PATIENT
  Sex: Female
  Weight: 47 kg

DRUGS (5)
  1. HALDOL DECANOAS [Suspect]
     Indication: ACCIDENTAL EXPOSURE
     Route: 030
  2. NEXIUM [Concomitant]
     Route: 048
  3. SEROPLEX [Concomitant]
     Route: 048
  4. IMOVANE [Concomitant]
     Route: 048
  5. ACETAMINOPHEN [Concomitant]
     Route: 048

REACTIONS (2)
  - ACCIDENTAL EXPOSURE [None]
  - SOMNOLENCE [None]
